FAERS Safety Report 26000195 (Version 1)
Quarter: 2025Q4

REPORT INFORMATION
  Report Type: Spontaneous
  Country: SG (occurrence: SG)
  Receive Date: 20251105
  Receipt Date: 20251105
  Transmission Date: 20260118
  Serious: Yes (Other)
  Sender: GILEAD
  Company Number: SG-GILEAD-2025-0734317

PATIENT
  Age: 70 Year
  Sex: Female

DRUGS (1)
  1. SACITUZUMAB GOVITECAN-HZIY [Suspect]
     Active Substance: SACITUZUMAB GOVITECAN-HZIY
     Indication: Triple negative breast cancer
     Dosage: 7.5 MG/KG DOSE REDUCTION
     Route: 065

REACTIONS (4)
  - Mucosal inflammation [Unknown]
  - Pain [Unknown]
  - Neutropenia [Unknown]
  - Disease progression [Unknown]
